FAERS Safety Report 6793287-1 (Version None)
Quarter: 2010Q2

REPORT INFORMATION
  Report Type: 
  Country: None (occurrence: None)
  Receive Date: 20100624
  Receipt Date: 20091021
  Transmission Date: 20101027
  Serious: Yes (Other)
  Sender: FDA-Public Use
  Company Number: US-MYLANLABS-2009S1018521

PATIENT
  Age: 35 Year
  Sex: Male

DRUGS (4)
  1. CLOZAPINE [Suspect]
     Indication: SCHIZOPHRENIA
     Route: 048
     Dates: end: 20090901
  2. SEROQUEL [Concomitant]
  3. DEPAKOTE ER [Concomitant]
  4. CLONAZEPAM [Concomitant]

REACTIONS (1)
  - GRANULOCYTOPENIA [None]
